FAERS Safety Report 8886941 (Version 3)
Quarter: 2012Q4

REPORT INFORMATION
  Report Type: 
  Country: JP (occurrence: JP)
  Receive Date: 20121105
  Receipt Date: 20121119
  Transmission Date: 20130627
  Serious: Yes (Hospitalization)
  Sender: FDA-Public Use
  Company Number: JP-PFIZER INC-2012273297

PATIENT
  Age: 77 Year
  Sex: Female

DRUGS (2)
  1. SEIBULE [Suspect]
     Indication: TYPE 2 DIABETES MELLITUS
     Dosage: 150mg, Daily
     Route: 048
     Dates: start: 2008
  2. UNSPECIFIED INGREDIENT [Suspect]
     Indication: TYPE 2 DIABETES MELLITUS
     Dosage: UNK
     Route: 058
     Dates: start: 2008, end: 20120723

REACTIONS (1)
  - Hypoglycaemia unawareness [Recovering/Resolving]
